FAERS Safety Report 5015154-6 (Version None)
Quarter: 2006Q2

REPORT INFORMATION
  Report Type: 
  Country: None (occurrence: None)
  Receive Date: 20060530
  Receipt Date: 20060519
  Transmission Date: 20061013
  Serious: Yes (Other)
  Sender: FDA-Public Use
  Company Number: GXKR2006DE02872

PATIENT
  Sex: Female
  Weight: 72 kg

DRUGS (3)
  1. LORATADIN [Suspect]
     Dosage: 10 MG, QD, ORAL
     Route: 048
     Dates: start: 20060510, end: 20060515
  2. LEVEMIR (INSULIN DETEMIR) [Suspect]
     Indication: DIABETES MELLITUS INSULIN-DEPENDENT
     Dosage: 21
  3. NOVORAPID (INSULIN ASPART) [Suspect]
     Indication: DIABETES MELLITUS INSULIN-DEPENDENT
     Dosage: 30

REACTIONS (1)
  - BLOOD GLUCOSE INCREASED [None]
